FAERS Safety Report 4939261-9 (Version None)
Quarter: 2006Q1

REPORT INFORMATION
  Report Type: 
  Country: None (occurrence: None)
  Receive Date: 20060306
  Receipt Date: 20060220
  Transmission Date: 20060701
  Serious: Yes (Hospitalization)
  Sender: FDA-Public Use
  Company Number: EWC050845534

PATIENT
  Age: 64 Year
  Sex: Male
  Weight: 90 kg

DRUGS (9)
  1. CIALIS [Suspect]
     Indication: ERECTILE DYSFUNCTION
     Dosage: 20 MG, AS NEEDED, ORAL
     Route: 048
     Dates: start: 20041001
  2. IRBESARTAN [Concomitant]
  3. SIMVASTATIN [Concomitant]
  4. HJERTEMAGNYL [Concomitant]
  5. ORABET (METFORMIN HYDROCHLORIDE) [Concomitant]
  6. HUMULIN /PRI/ (INSULIN HUMAN) [Concomitant]
  7. IMOVANE (ZOPICLONE) [Concomitant]
  8. NOVONORM (REPAGLINIDE) [Concomitant]
  9. GLUCOBAY (ACARBOSE) [Concomitant]

REACTIONS (1)
  - ENCEPHALITIS HERPES [None]
